FAERS Safety Report 16055791 (Version 1)
Quarter: 2019Q1

REPORT INFORMATION
  Report Type: Spontaneous
  Country: KR (occurrence: KR)
  Receive Date: 20190311
  Receipt Date: 20190311
  Transmission Date: 20190418
  Serious: Yes (Other)
  Sender: FDA-Public Use
  Company Number: KR-MACLEODS PHARMACEUTICALS US LTD-MAC2019020401

PATIENT

DRUGS (1)
  1. TRIAMCINOLONE [Suspect]
     Active Substance: TRIAMCINOLONE
     Indication: SKIN HYPERPIGMENTATION
     Dosage: UNK, SEVERAL TIMES INJECTION
     Route: 026

REACTIONS (2)
  - Product contamination [Unknown]
  - Cutaneous nocardiosis [Recovering/Resolving]
